FAERS Safety Report 11943368 (Version 1)
Quarter: 2016Q1

REPORT INFORMATION
  Report Type: Spontaneous
  Country: US (occurrence: US)
  Receive Date: 20160125
  Receipt Date: 20160125
  Transmission Date: 20160526
  Serious: Yes (Hospitalization)
  Sender: FDA-Public Use
  Company Number: US-UNITED THERAPEUTICS-UNT-2015-013210

PATIENT
  Age: 50 Year
  Sex: Female
  Weight: 86.17 kg

DRUGS (2)
  1. WARFARIN [Concomitant]
     Active Substance: WARFARIN
     Indication: PRODUCT USED FOR UNKNOWN INDICATION
  2. REMODULIN [Suspect]
     Active Substance: TREPROSTINIL
     Indication: PULMONARY ARTERIAL HYPERTENSION
     Dosage: 0.020 ?G/KG, CONTINUING
     Route: 058
     Dates: start: 20150929, end: 20151017

REACTIONS (4)
  - Treatment noncompliance [Unknown]
  - Malaise [Recovering/Resolving]
  - Therapy cessation [Unknown]
  - Diarrhoea [Recovered/Resolved]

NARRATIVE: CASE EVENT DATE: 2015
